FAERS Safety Report 7512625-5 (Version None)
Quarter: 2011Q2

REPORT INFORMATION
  Report Type: 
  Country: None (occurrence: None)
  Receive Date: 20110531
  Receipt Date: 20110523
  Transmission Date: 20111010
  Serious: Yes (Death)
  Sender: FDA-Public Use
  Company Number: CN-ROCHE-779571

PATIENT
  Sex: Male

DRUGS (3)
  1. TACROLIMUS [Concomitant]
     Indication: RENAL TRANSPLANT
     Dates: start: 20110325
  2. MYCOPHENOLATE MEFETIL [Suspect]
     Indication: RENAL TRANSPLANT
     Route: 048
     Dates: start: 20110325
  3. PREDNISONE [Concomitant]
     Indication: RENAL TRANSPLANT
     Dates: start: 20110325

REACTIONS (1)
  - TRANSPLANT REJECTION [None]
